FAERS Safety Report 4299928-5 (Version None)
Quarter: 2004Q1

REPORT INFORMATION
  Report Type: 
  Country: None (occurrence: None)
  Receive Date: 20040220
  Receipt Date: 20040209
  Transmission Date: 20041129
  Serious: Yes (Life-Threatening)
  Sender: FDA-Public Use
  Company Number: 200410954US

PATIENT
  Sex: Male
  Weight: 98 kg

DRUGS (2)
  1. AMARYL [Suspect]
     Indication: DIABETES MELLITUS NON-INSULIN-DEPENDENT
     Route: 048
     Dates: start: 20030827, end: 20040208
  2. ALBUTEROL [Concomitant]
     Indication: ASTHMA
     Dosage: DOSE: 2 PUFF
     Route: 048
     Dates: start: 19990101

REACTIONS (6)
  - BLOOD OSMOLARITY INCREASED [None]
  - DIABETIC KETOACIDOSIS [None]
  - FATIGUE [None]
  - HYPERGLYCAEMIA [None]
  - NAUSEA [None]
  - URINE OUTPUT DECREASED [None]
